FAERS Safety Report 9684789 (Version 1)
Quarter: 2013Q4

REPORT INFORMATION
  Report Type: Spontaneous
  Country: US (occurrence: US)
  Receive Date: 20131112
  Receipt Date: 20131112
  Transmission Date: 20140711
  Serious: No
  Sender: FDA-Public Use
  Company Number: US-BAXTER-2013BAX042563

PATIENT
  Sex: 0

DRUGS (2)
  1. TISSEEL VH S/D [Suspect]
     Indication: EYE OPERATION
     Route: 061
  2. TISSEEL VH S/D [Suspect]
     Indication: EYE OPERATION

REACTIONS (1)
  - Graft complication [Recovered/Resolved]
